FAERS Safety Report 4860387-2 (Version None)
Quarter: 2005Q4

REPORT INFORMATION
  Report Type: 
  Country: None (occurrence: None)
  Receive Date: 20051219
  Receipt Date: 20051209
  Transmission Date: 20060501
  Serious: Yes (Other)
  Sender: FDA-Public Use
  Company Number: CA-BRISTOL-MYERS SQUIBB COMPANY-13217732

PATIENT
  Age: 77 Year
  Sex: Female

DRUGS (6)
  1. TEQUIN [Suspect]
  2. AMLODIPINE [Concomitant]
     Route: 048
  3. FOLIC ACID [Concomitant]
  4. LEVOFLOXACIN [Concomitant]
     Route: 048
  5. METOPROLOL [Concomitant]
  6. RANITIDINE [Concomitant]
     Route: 048

REACTIONS (4)
  - DEPRESSED LEVEL OF CONSCIOUSNESS [None]
  - HYPERGLYCAEMIA [None]
  - HYPERHIDROSIS [None]
  - HYPOGLYCAEMIA [None]
